FAERS Safety Report 22194000 (Version 1)
Quarter: 2023Q2

REPORT INFORMATION
  Report Type: Spontaneous
  Country: MX (occurrence: MX)
  Receive Date: 20230411
  Receipt Date: 20230411
  Transmission Date: 20230721
  Serious: Yes (Hospitalization)
  Sender: FDA-Public Use
  Company Number: MX-ASTELLAS-2023US008711

PATIENT
  Age: 45 Year
  Sex: Male

DRUGS (21)
  1. BENDAMUSTINE HYDROCHLORIDE [Suspect]
     Active Substance: BENDAMUSTINE HYDROCHLORIDE
     Indication: Diffuse large B-cell lymphoma
     Dosage: FREQUENCY TIME : CYCLICAL (RECEIVED FOURTH-LINE CHEMOTHERAPY)
     Route: 042
     Dates: start: 20220303
  2. IFOSFAMIDE [Suspect]
     Active Substance: IFOSFAMIDE
     Indication: Diffuse large B-cell lymphoma
     Dosage: RECEIVED SECOND LINE OF CHEMOTHERAPY WITH R-ICE
     Route: 065
     Dates: start: 202102
  3. METHOTREXATE [Suspect]
     Active Substance: METHOTREXATE
     Indication: Diffuse large B-cell lymphoma
     Dosage: RECEIVED SALVAGE THERAPY
     Route: 037
     Dates: start: 2021
  4. BRENTUXIMAB [Suspect]
     Active Substance: BRENTUXIMAB
     Indication: Diffuse large B-cell lymphoma
     Dosage: RECEIVED FOURTH-LINE CHEMOTHERAPY
     Route: 065
     Dates: start: 20220303
  5. RITUXIMAB [Suspect]
     Active Substance: RITUXIMAB
     Indication: Diffuse large B-cell lymphoma
     Dosage: RECEIVED R-CHOP THERAPY
     Route: 065
  6. RITUXIMAB [Suspect]
     Active Substance: RITUXIMAB
     Dosage: RECEIVED SECOND LINE OF CHEMOTHERAPY WITH R-ICE.
     Route: 065
     Dates: start: 202102
  7. RITUXIMAB [Suspect]
     Active Substance: RITUXIMAB
     Dosage: RECEIVED R-ESHAP THERAPY
     Route: 065
     Dates: start: 2021, end: 20211217
  8. VINCRISTINE [Suspect]
     Active Substance: VINCRISTINE
     Indication: Diffuse large B-cell lymphoma
     Dosage: RECEIVED R-CHOP THERAPY
     Route: 065
  9. CYCLOPHOSPHAMIDE [Suspect]
     Active Substance: CYCLOPHOSPHAMIDE
     Indication: Diffuse large B-cell lymphoma
     Dosage: RECEIVED R-CHOP THERAPY
     Route: 065
  10. DOXORUBICIN [Suspect]
     Active Substance: DOXORUBICIN
     Indication: Diffuse large B-cell lymphoma
     Dosage: RECEIVED R-CHOP THERAPY
     Route: 065
  11. PREDNISONE [Suspect]
     Active Substance: PREDNISONE
     Indication: Diffuse large B-cell lymphoma
     Dosage: RECEIVED R-CHOP THERAPY
     Route: 065
  12. CARBOPLATIN [Suspect]
     Active Substance: CARBOPLATIN
     Indication: Diffuse large B-cell lymphoma
     Dosage: RECEIVED SECOND LINE OF CHEMOTHERAPY WITH R-ICE
     Route: 065
     Dates: start: 202102
  13. ETOPOSIDE [Suspect]
     Active Substance: ETOPOSIDE
     Indication: Diffuse large B-cell lymphoma
     Dosage: RECEIVED SECOND LINE OF CHEMOTHERAPY WITH R-ICE
     Route: 065
     Dates: start: 202102
  14. ETOPOSIDE [Suspect]
     Active Substance: ETOPOSIDE
     Dosage: RECEIVED R-ESHAP THERAPY
     Route: 065
     Dates: start: 2021, end: 20211217
  15. CYTARABINE [Suspect]
     Active Substance: CYTARABINE
     Indication: Diffuse large B-cell lymphoma
     Dosage: RECEIVED R-ESHAP THERAPY
     Route: 065
     Dates: start: 2021, end: 20211217
  16. CISPLATIN [Suspect]
     Active Substance: CISPLATIN
     Indication: Diffuse large B-cell lymphoma
     Dosage: RECEIVED R-ESHAP THERAPY
     Route: 065
     Dates: start: 2021, end: 20211217
  17. METHYLPREDNISOLONE [Suspect]
     Active Substance: METHYLPREDNISOLONE
     Indication: Diffuse large B-cell lymphoma
     Dosage: RECEIVED R-ESHAP THERAPY
     Route: 065
     Dates: start: 2021, end: 20211217
  18. PIPERACILLIN/TAZOBACTAM HEXAL [Concomitant]
     Indication: Pneumonia
     Route: 065
     Dates: start: 202202, end: 202202
  19. PIPERACILLIN/TAZOBACTAM HEXAL [Concomitant]
     Indication: Evidence based treatment
     Route: 065
     Dates: start: 202202
  20. LEVOFLOXACIN [Concomitant]
     Active Substance: LEVOFLOXACIN
     Indication: Pneumonia
     Route: 065
     Dates: start: 202202, end: 202202
  21. LEVOFLOXACIN [Concomitant]
     Active Substance: LEVOFLOXACIN
     Indication: Evidence based treatment

REACTIONS (2)
  - COVID-19 [Unknown]
  - Pneumonia [Unknown]

NARRATIVE: CASE EVENT DATE: 20220101
